FAERS Safety Report 4920502-9 (Version None)
Quarter: 2006Q1

REPORT INFORMATION
  Report Type: 
  Country: None (occurrence: None)
  Receive Date: 20060223
  Receipt Date: 20011003
  Transmission Date: 20060701
  Serious: Yes (Death, Hospitalization, Other)
  Sender: FDA-Public Use
  Company Number: US-MERCK-01100595

PATIENT
  Age: 73 Year
  Sex: Female
  Weight: 57 kg

DRUGS (8)
  1. VIOXX [Suspect]
     Indication: OSTEOPOROSIS
     Route: 048
     Dates: start: 20000111, end: 20010721
  2. VIOXX [Suspect]
     Route: 065
  3. VIOXX [Suspect]
     Route: 065
  4. VIOXX [Suspect]
     Indication: ARTHRALGIA
     Route: 048
     Dates: start: 20000111, end: 20010721
  5. VIOXX [Suspect]
     Route: 065
  6. VIOXX [Suspect]
     Route: 065
  7. FOSAMAX [Concomitant]
     Route: 048
  8. ADVIL [Concomitant]
     Route: 065

REACTIONS (7)
  - ANURIA [None]
  - ANXIETY [None]
  - CORONARY ARTERY DISEASE [None]
  - DEATH [None]
  - HYPERTENSION [None]
  - MITRAL VALVE INCOMPETENCE [None]
  - MYOCARDIAL INFARCTION [None]
